FAERS Safety Report 24313508 (Version 3)
Quarter: 2024Q4

REPORT INFORMATION
  Report Type: Spontaneous
  Country: JP (occurrence: JP)
  Receive Date: 20240912
  Receipt Date: 20241010
  Transmission Date: 20250115
  Serious: Yes (Hospitalization)
  Sender: AKEBIA THERAPEUTICS
  Company Number: JP-IQVIA-JT2024JP000355

PATIENT
  Age: 78 Year
  Sex: Female
  Weight: 46.8 kg

DRUGS (7)
  1. FERRIC CITRATE ANHYDROUS [Suspect]
     Active Substance: FERRIC CITRATE ANHYDROUS
     Indication: Iron deficiency anaemia
     Dosage: 250 MILLIGRAM, TID
     Route: 048
  2. ENARODUSTAT [Suspect]
     Active Substance: ENARODUSTAT
     Indication: Nephrogenic anaemia
     Dosage: 2 MILLIGRAM, QD
     Route: 048
     Dates: start: 20220830
  3. ENARODUSTAT [Suspect]
     Active Substance: ENARODUSTAT
     Dosage: 4 MILLIGRAM, QD
     Route: 048
     Dates: start: 20221115
  4. FEBUXOSTAT [Concomitant]
     Active Substance: FEBUXOSTAT
     Indication: Nephrosclerosis
     Dosage: 10 MILLIGRAM, QD
     Route: 048
  5. KREMEZIN [Concomitant]
     Active Substance: ACTIVATED CHARCOAL
     Indication: Nephrosclerosis
     Dosage: 2000 MILLIGRAM, BID
     Route: 048
  6. LOKELMA [Concomitant]
     Active Substance: SODIUM ZIRCONIUM CYCLOSILICATE
     Indication: Nephrosclerosis
     Dosage: 5 GRAM, QD
     Route: 048
  7. POLAPREZINC [Concomitant]
     Active Substance: POLAPREZINC
     Indication: Nephrogenic anaemia
     Dosage: 75 MILLIGRAM, BID
     Route: 048
     Dates: start: 20221115

REACTIONS (1)
  - Vogt-Koyanagi-Harada disease [Recovering/Resolving]

NARRATIVE: CASE EVENT DATE: 20240702
